FAERS Safety Report 4347165-8 (Version None)
Quarter: 2004Q1

REPORT INFORMATION
  Report Type: 
  Country: None (occurrence: None)
  Receive Date: 20040329
  Receipt Date: 20031229
  Transmission Date: 20041129
  Serious: No
  Sender: FDA-Public Use
  Company Number: USA031255479

PATIENT
  Age: 7 Year
  Sex: Male
  Weight: 30 kg

DRUGS (1)
  1. STRATTERA [Suspect]
     Indication: PSYCHOMOTOR HYPERACTIVITY
     Dosage: 40 MG/DAY
     Dates: start: 20031222

REACTIONS (3)
  - DECREASED APPETITE [None]
  - FATIGUE [None]
  - PSYCHOMOTOR HYPERACTIVITY [None]
